FAERS Safety Report 6055050-9 (Version None)
Quarter: 2009Q1

REPORT INFORMATION
  Report Type: 
  Country: None (occurrence: None)
  Receive Date: 20090122
  Receipt Date: 20090107
  Transmission Date: 20090719
  Serious: Yes (Death, Hospitalization)
  Sender: FDA-Public Use
  Company Number: 2009AL000098

PATIENT
  Age: 72 Year
  Sex: Male

DRUGS (5)
  1. METFORMIN HYDROCHLORIDE [Suspect]
     Dosage: 1000 MG;TID
  2. TOLBUTAMIDE [Concomitant]
  3. SIMVASTATIN [Concomitant]
  4. HYDROCHLOROTHIAZIDE [Concomitant]
  5. ENALAPRIL MALEATE [Concomitant]

REACTIONS (14)
  - ABDOMINAL DISCOMFORT [None]
  - CATHETER SEPSIS [None]
  - COMA [None]
  - DRUG LEVEL INCREASED [None]
  - EXTREMITY NECROSIS [None]
  - HAEMODIALYSIS [None]
  - HAEMODYNAMIC INSTABILITY [None]
  - HYPOGLYCAEMIA [None]
  - ILEUS [None]
  - LACTIC ACIDOSIS [None]
  - PNEUMONIA [None]
  - RENAL FAILURE [None]
  - RESPIRATORY DISTRESS [None]
  - SOMNOLENCE [None]
